FAERS Safety Report 24180240 (Version 1)
Quarter: 2024Q3

REPORT INFORMATION
  Report Type: Spontaneous
  Country: US (occurrence: None)
  Receive Date: 20240806
  Receipt Date: 20240806
  Transmission Date: 20241017
  Serious: Yes (Hospitalization)
  Sender: Public
  Company Number: None

PATIENT
  Age: 71 Year
  Sex: Female

DRUGS (1)
  1. IBRANCE [Suspect]
     Active Substance: PALBOCICLIB
     Indication: Breast cancer female
     Dosage: OTHER FREQUENCY : 3WEEKS AND 1 WEEK OFF ;?
     Route: 048

REACTIONS (5)
  - Fall [None]
  - Femur fracture [None]
  - Hip fracture [None]
  - Metastases to bone [None]
  - Metastases to liver [None]
